FAERS Safety Report 14974447 (Version 1)
Quarter: 2018Q2

REPORT INFORMATION
  Report Type: Spontaneous
  Country: US (occurrence: US)
  Receive Date: 20180514
  Receipt Date: 20180514
  Transmission Date: 20180711
  Serious: Yes (Congenital Anomaly, Other)
  Sender: FDA-Public Use
  Company Number: None

PATIENT
  Age: 55 Year
  Sex: Female
  Weight: 99 kg

DRUGS (11)
  1. ATIVAN [Concomitant]
     Active Substance: LORAZEPAM
  2. TUMERIC [Concomitant]
     Active Substance: HERBALS\TURMERIC
  3. XGEVA [Concomitant]
     Active Substance: DENOSUMAB
  4. DULOXETINE. [Concomitant]
     Active Substance: DULOXETINE
  5. IBRANCE [Suspect]
     Active Substance: PALBOCICLIB
     Indication: BREAST CANCER
     Route: 048
     Dates: start: 20171221, end: 20180514
  6. K PHOS NEUTRAL [Concomitant]
     Active Substance: POTASSIUM PHOSPHATE, MONOBASIC\SODIUM PHOSPHATE, DIBASIC, ANHYDROUS\SODIUM PHOSPHATE, MONOBASIC, MONOHYDRATE
  7. CALCIUM + D [Concomitant]
     Active Substance: CALCIUM\VITAMIN D
  8. FASLODEX [Concomitant]
     Active Substance: FULVESTRANT
  9. ADDERALL [Concomitant]
     Active Substance: AMPHETAMINE ASPARTATE\AMPHETAMINE SULFATE\DEXTROAMPHETAMINE SACCHARATE\DEXTROAMPHETAMINE SULFATE
  10. RISPERDAL [Concomitant]
     Active Substance: RISPERIDONE
  11. FAMOTIDINE. [Concomitant]
     Active Substance: FAMOTIDINE

REACTIONS (1)
  - Disease progression [None]
